FAERS Safety Report 13334435 (Version 1)
Quarter: 2017Q1

REPORT INFORMATION
  Report Type: Spontaneous
  Country: US (occurrence: US)
  Receive Date: 20170314
  Receipt Date: 20170314
  Transmission Date: 20170428
  Serious: No
  Sender: FDA-Public Use
  Company Number: US-JNJFOC-20170205289

PATIENT
  Age: 90 Year
  Sex: Male

DRUGS (2)
  1. IMBRUVICA [Suspect]
     Active Substance: IBRUTINIB
     Indication: PRODUCT USED FOR UNKNOWN INDICATION
     Route: 065
     Dates: end: 201701
  2. IMBRUVICA [Suspect]
     Active Substance: IBRUTINIB
     Indication: PRODUCT USED FOR UNKNOWN INDICATION
     Route: 065
     Dates: start: 20151212

REACTIONS (5)
  - Diarrhoea [Recovered/Resolved]
  - Incorrect dose administered [Recovered/Resolved]
  - Decreased appetite [Recovered/Resolved]
  - Off label use [Recovered/Resolved]
  - Contusion [Recovering/Resolving]

NARRATIVE: CASE EVENT DATE: 20151212
